FAERS Safety Report 10169822 (Version 1)
Quarter: 2014Q2

REPORT INFORMATION
  Report Type: Spontaneous
  Country: AT (occurrence: AT)
  Receive Date: 20140513
  Receipt Date: 20140513
  Transmission Date: 20141212
  Serious: Yes (Hospitalization)
  Sender: FDA-Public Use
  Company Number: AT-PFIZER INC-2014130130

PATIENT
  Age: 35 Year
  Sex: Female
  Weight: 65 kg

DRUGS (13)
  1. PANTOLOC [Suspect]
     Dosage: 40 MG, UNK
     Route: 065
     Dates: end: 20100826
  2. PANTOLOC [Suspect]
     Dosage: 20 MG, 1X/DAY
     Route: 065
     Dates: start: 20100827
  3. GLADEM [Suspect]
     Indication: DEPRESSION
     Dosage: 100 MG, UNK
     Route: 065
     Dates: end: 20100826
  4. GLADEM [Suspect]
     Indication: ALCOHOLIC PSYCHOSIS
     Dosage: 100 MG, 1X/DAY
     Route: 065
     Dates: end: 20100826
  5. GLADEM [Suspect]
     Dosage: 150 MG, UNK
     Route: 065
     Dates: start: 20100827
  6. IXEL [Suspect]
     Dosage: 50 MG, UNK
     Route: 065
     Dates: start: 201006, end: 20100825
  7. TRILEPTAL [Suspect]
     Indication: DEPRESSION
     Dosage: 1200 MG, UNK
     Route: 065
     Dates: end: 20100826
  8. TRILEPTAL [Suspect]
     Dosage: 300 MG, UNK
     Route: 065
     Dates: start: 20100827, end: 20100827
  9. DOMINAL [Suspect]
     Dosage: 80 MG, UNK
     Route: 065
     Dates: end: 20100826
  10. TEMESTA [Concomitant]
     Dosage: 7.5 MG, UNK
     Dates: start: 20100826, end: 20100830
  11. DEPAKINE [Concomitant]
     Dosage: UNK
     Dates: start: 20100827, end: 20100827
  12. ALPRAZOLAM [Concomitant]
     Dosage: 2 MG, UNK
     Dates: end: 20100825
  13. CONCOR [Concomitant]
     Dosage: 5 MG, UNK
     Dates: end: 20100827

REACTIONS (2)
  - Hypochloraemia [Recovered/Resolved]
  - Hyponatraemia [Recovered/Resolved]
